FAERS Safety Report 7466852-6 (Version None)
Quarter: 2011Q2

REPORT INFORMATION
  Report Type: 
  Country: None (occurrence: None)
  Receive Date: 20110509
  Receipt Date: 20100917
  Transmission Date: 20111010
  Serious: No
  Sender: FDA-Public Use
  Company Number: US-ALEXION-A201001195

PATIENT
  Sex: Female

DRUGS (2)
  1. SOLIRIS [Suspect]
     Indication: PAROXYSMAL NOCTURNAL HAEMOGLOBINURIA
     Dosage: UNK
     Route: 042
  2. MENINGOCOCCAL VACCINE [Suspect]
     Indication: IMMUNISATION
     Dosage: UNK
     Dates: start: 20100827, end: 20100827

REACTIONS (1)
  - HEADACHE [None]
